FAERS Safety Report 4726811-0 (Version None)
Quarter: 2005Q3

REPORT INFORMATION
  Report Type: 
  Country: None (occurrence: None)
  Receive Date: 20050725
  Receipt Date: 20050427
  Transmission Date: 20060218
  Serious: No
  Sender: FDA-Public Use
  Company Number: USA050496796

PATIENT
  Age: 35 Year
  Sex: Male

DRUGS (6)
  1. STRATTERA [Suspect]
     Indication: ATTENTION DEFICIT/HYPERACTIVITY DISORDER
     Dosage: 40 MG IN THE MORNING
     Dates: start: 20040819, end: 20050424
  2. TRAZODONE HCL [Concomitant]
  3. SEROQUEL [Concomitant]
  4. PROPRANOLOL [Concomitant]
  5. ATIVAN [Concomitant]
  6. IBUPROFEN [Concomitant]

REACTIONS (2)
  - RASH [None]
  - URTICARIA [None]
